FAERS Safety Report 11087588 (Version 1)
Quarter: 2015Q2

REPORT INFORMATION
  Report Type: Spontaneous
  Country: BR (occurrence: BR)
  Receive Date: 20150504
  Receipt Date: 20150504
  Transmission Date: 20150821
  Serious: Yes (Other)
  Sender: FDA-Public Use
  Company Number: BR-ACTAVIS-2015-08772

PATIENT
  Age: 60 Year
  Sex: Female

DRUGS (1)
  1. TRIAMCINOLONE ACETONIDE (AMALLC) [Suspect]
     Active Substance: TRIAMCINOLONE ACETONIDE
     Indication: TENDON INJURY
     Dosage: 3 ML, SINGLE
     Route: 050

REACTIONS (6)
  - Idiosyncratic drug reaction [Not Recovered/Not Resolved]
  - Injection site atrophy [Not Recovered/Not Resolved]
  - Injection site fibrosis [Not Recovered/Not Resolved]
  - Plantar fasciitis [Unknown]
  - Stress fracture [Unknown]
  - Drug administered at inappropriate site [Not Recovered/Not Resolved]
